FAERS Safety Report 8579680-5 (Version None)
Quarter: 2012Q3

REPORT INFORMATION
  Report Type: 
  Country: None (occurrence: None)
  Receive Date: 20120808
  Receipt Date: 20120731
  Transmission Date: 20120928
  Serious: Yes (Hospitalization, Congenital Anomaly, Other)
  Sender: FDA-Public Use
  Company Number: US-JNJFOC-20120517788

PATIENT
  Sex: Female

DRUGS (4)
  1. MULTI-VITAMINS [Concomitant]
     Indication: FOETAL EXPOSURE DURING PREGNANCY
     Route: 064
  2. SYNTHROID [Concomitant]
     Indication: FOETAL EXPOSURE DURING PREGNANCY
     Route: 064
  3. DEPAKOTE [Suspect]
     Indication: FOETAL EXPOSURE DURING PREGNANCY
     Route: 064
  4. TOPAMAX [Suspect]
     Indication: FOETAL EXPOSURE DURING PREGNANCY
     Route: 064
     Dates: start: 20041124, end: 20050224

REACTIONS (12)
  - EUSTACHIAN TUBE DYSFUNCTION [None]
  - CONVULSION [None]
  - DACRYOSTENOSIS CONGENITAL [None]
  - SOCIAL AVOIDANT BEHAVIOUR [None]
  - OTITIS MEDIA [None]
  - EMOTIONAL DISTRESS [None]
  - SPEECH DISORDER [None]
  - CLEFT LIP [None]
  - DEVELOPMENTAL DELAY [None]
  - CONDUCTIVE DEAFNESS [None]
  - CLEFT PALATE [None]
  - ATTENTION DEFICIT/HYPERACTIVITY DISORDER [None]
